FAERS Safety Report 11627414 (Version 2)
Quarter: 2015Q4

REPORT INFORMATION
  Report Type: Report from Study
  Country: US (occurrence: US)
  Receive Date: 20151013
  Receipt Date: 20151023
  Transmission Date: 20160304
  Serious: No
  Sender: FDA-Public Use
  Company Number: US-AMGEN-USASL2015101518

PATIENT
  Age: 82 Year
  Sex: Male

DRUGS (1)
  1. ENBREL [Suspect]
     Active Substance: ETANERCEPT
     Indication: ANKYLOSING SPONDYLITIS
     Dosage: UNK UNK
     Route: 065
     Dates: start: 20150623

REACTIONS (10)
  - Joint dislocation [Unknown]
  - Back pain [Unknown]
  - Wrong technique in product usage process [Unknown]
  - Injection site reaction [Unknown]
  - Arthralgia [Unknown]
  - Pain in extremity [Unknown]
  - Injection site haemorrhage [Unknown]
  - Injection site rash [Unknown]
  - Injection site erythema [Unknown]
  - Injection site swelling [Unknown]

NARRATIVE: CASE EVENT DATE: 2015
